FAERS Safety Report 11399449 (Version 1)
Quarter: 2015Q3

REPORT INFORMATION
  Report Type: Spontaneous
  Country: US (occurrence: None)
  Receive Date: 20150819
  Receipt Date: 20150819
  Transmission Date: 20151125
  Serious: Yes (Disabling)
  Sender: FDA-Public Use
  Company Number: None

PATIENT
  Age: 57 Year
  Sex: Female
  Weight: 68.04 kg

DRUGS (2)
  1. NORCO [Suspect]
     Active Substance: ACETAMINOPHEN\HYDROCODONE BITARTRATE
     Indication: MYOFASCIAL PAIN SYNDROME
     Dosage: .5 TO 1 TAB Q 4 HR. AS NEEDED TAKEN BY MOUTH
     Route: 048
     Dates: start: 20150728, end: 20150818
  2. AMBIEN [Concomitant]
     Active Substance: ZOLPIDEM TARTRATE

REACTIONS (6)
  - Product substitution issue [None]
  - Product quality issue [None]
  - Product formulation issue [None]
  - Drug ineffective [None]
  - Agitation [None]
  - Pain [None]

NARRATIVE: CASE EVENT DATE: 20150728
